FAERS Safety Report 6184827-4 (Version None)
Quarter: 2009Q2

REPORT INFORMATION
  Report Type: 
  Country: None (occurrence: None)
  Receive Date: 20090508
  Receipt Date: 20090428
  Transmission Date: 20091009
  Serious: Yes (Hospitalization)
  Sender: FDA-Public Use
  Company Number: FR-GENENTECH-282412

PATIENT
  Sex: Female

DRUGS (1)
  1. HERCEPTIN [Suspect]
     Indication: BREAST CANCER
     Dosage: 360 KIU, UNK
     Route: 042
     Dates: start: 20090309, end: 20090309

REACTIONS (3)
  - CHEST PAIN [None]
  - DYSPNOEA [None]
  - ERYTHEMA [None]
